FAERS Safety Report 21408973 (Version 2)
Quarter: 2022Q4

REPORT INFORMATION
  Report Type: Spontaneous
  Country: US (occurrence: US)
  Receive Date: 20221004
  Receipt Date: 20221027
  Transmission Date: 20230113
  Serious: No
  Sender: FDA-Public Use
  Company Number: US-SA-SAC20220929001757

PATIENT
  Age: 42 Year
  Sex: Female

DRUGS (6)
  1. DUPIXENT [Suspect]
     Active Substance: DUPILUMAB
     Indication: Dermatitis allergic
     Dosage: 300 MG, QOW
     Route: 058
     Dates: start: 20220921
  2. DOXYCYCLINE [Concomitant]
     Active Substance: DOXYCYCLINE
     Dosage: UNK
  3. HYDROCORTISONE [Concomitant]
     Active Substance: HYDROCORTISONE
     Indication: Nasopharyngitis
  4. CLOBETASOL [Concomitant]
     Active Substance: CLOBETASOL
     Indication: Nasopharyngitis
  5. MUPIROCIN [Concomitant]
     Active Substance: MUPIROCIN
     Indication: Nasopharyngitis
  6. PROTOPIC [Concomitant]
     Active Substance: TACROLIMUS
     Indication: Nasopharyngitis

REACTIONS (5)
  - Injection site rash [Recovered/Resolved]
  - Injection site discomfort [Unknown]
  - Injection site erythema [Recovered/Resolved]
  - Eczema [Unknown]
  - Skin fissures [Unknown]
